FAERS Safety Report 15605035 (Version 1)
Quarter: 2018Q4

REPORT INFORMATION
  Report Type: Spontaneous
  Country: FR (occurrence: FR)
  Receive Date: 20181112
  Receipt Date: 20181112
  Transmission Date: 20190205
  Serious: Yes (Other)
  Sender: FDA-Public Use
  Company Number: FR-ROCHE-2211456

PATIENT
  Age: 67 Year
  Sex: Male
  Weight: 79 kg

DRUGS (2)
  1. COTELLIC [Suspect]
     Active Substance: COBIMETINIB
     Indication: METASTATIC MALIGNANT MELANOMA
     Dosage: MOST RECENT DOSE IN /MAR/2017
     Route: 048
     Dates: start: 20160822
  2. ZELBORAF [Suspect]
     Active Substance: VEMURAFENIB
     Indication: METASTATIC MALIGNANT MELANOMA
     Dosage: MOST RECENTDOSE IN /MAR/2017
     Route: 048
     Dates: start: 20160822

REACTIONS (2)
  - Rash pruritic [Recovered/Resolved]
  - Eczema [Recovered/Resolved]

NARRATIVE: CASE EVENT DATE: 201703
